FAERS Safety Report 19459664 (Version 1)
Quarter: 2021Q2

REPORT INFORMATION
  Report Type: Spontaneous
  Country: RS (occurrence: RS)
  Receive Date: 20210624
  Receipt Date: 20210624
  Transmission Date: 20210717
  Serious: Yes (Other)
  Sender: FDA-Public Use
  Company Number: RS-PFIZER INC-2021622647

PATIENT
  Age: 44 Year
  Sex: Female

DRUGS (4)
  1. CONTROLOC [PANTOPRAZOLE SODIUM SESQUIHYDRATE] [Concomitant]
     Dosage: 20 MG, 1X/DAY
     Dates: start: 201911
  2. XELJANZ [Suspect]
     Active Substance: TOFACITINIB CITRATE
     Indication: RHEUMATOID ARTHRITIS
     Dosage: 5 MG, 2X/DAY
     Route: 048
     Dates: start: 20190614, end: 202003
  3. AFLAMIL [Concomitant]
     Active Substance: ACECLOFENAC
     Indication: RHEUMATOID ARTHRITIS
     Dosage: 100 MG, 2X/DAY
     Dates: start: 201911
  4. PRONISON [Concomitant]
     Active Substance: PREDNISONE
     Indication: RHEUMATOID ARTHRITIS
     Dosage: 5 MG, 1X/DAY
     Dates: start: 2007

REACTIONS (2)
  - Transaminases increased [Unknown]
  - Autoimmune hepatitis [Recovered/Resolved]

NARRATIVE: CASE EVENT DATE: 202003
